FAERS Safety Report 20001725 (Version 1)
Quarter: 2021Q4

REPORT INFORMATION
  Report Type: Spontaneous
  Country: US (occurrence: US)
  Receive Date: 20211027
  Receipt Date: 20211027
  Transmission Date: 20220303
  Serious: Yes (Death, Hospitalization)
  Sender: FDA-Public Use
  Company Number: None

PATIENT
  Age: 91 Year
  Sex: Female
  Weight: 58.5 kg

DRUGS (1)
  1. LISINOPRIL [Suspect]
     Active Substance: LISINOPRIL
     Indication: Hypertension
     Dosage: ?          QUANTITY:1 TABLET(S);
     Route: 048
     Dates: start: 20210806, end: 20211027

REACTIONS (2)
  - Angioedema [None]
  - Cardiac arrest [None]

NARRATIVE: CASE EVENT DATE: 20210806
